FAERS Safety Report 12948743 (Version 4)
Quarter: 2017Q2

REPORT INFORMATION
  Report Type: Spontaneous
  Country: US (occurrence: US)
  Receive Date: 20161116
  Receipt Date: 20170504
  Transmission Date: 20170830
  Serious: Yes (Disabling, Other)
  Sender: FDA-Public Use
  Company Number: US-REGENERON PHARMACEUTICALS, INC.-2016-23735

PATIENT

DRUGS (8)
  1. EYLEA [Suspect]
     Active Substance: AFLIBERCEPT
     Dosage: 2 MG MILLIGRAM(S), LEFT EYE, MONTHLY
     Route: 031
     Dates: end: 20161104
  2. SIMVASTATIN. [Concomitant]
     Active Substance: SIMVASTATIN
     Indication: PRODUCT USED FOR UNKNOWN INDICATION
     Dosage: 20 MG MILLIGRAM(S), UNK
  3. EYLEA [Suspect]
     Active Substance: AFLIBERCEPT
     Indication: NEOVASCULAR AGE-RELATED MACULAR DEGENERATION
     Dosage: 2 MG MILLIGRAM(S), LEFT EYE, IN THE AFTERNOON, LEFT EYE
     Route: 031
     Dates: start: 20161026, end: 20161026
  4. METOPROLOL. [Concomitant]
     Active Substance: METOPROLOL
     Indication: PRODUCT USED FOR UNKNOWN INDICATION
     Dosage: 25 MG MILLIGRAM(S), UNK
  5. LEFLUNOMIDE. [Concomitant]
     Active Substance: LEFLUNOMIDE
     Indication: PRODUCT USED FOR UNKNOWN INDICATION
     Dosage: 20 MG MILLIGRAM(S), UNK
  6. TIMOLOL MALEATE. [Concomitant]
     Active Substance: TIMOLOL MALEATE
     Indication: PRODUCT USED FOR UNKNOWN INDICATION
     Dosage: 0.5 % PERCENT, QD IN BOTH EYES
     Dates: end: 20160907
  7. PREDNISONE. [Concomitant]
     Active Substance: PREDNISONE
     Indication: PRODUCT USED FOR UNKNOWN INDICATION
     Dosage: 7 MG MILLIGRAM(S), UNK
  8. TYLENOL [Concomitant]
     Active Substance: ACETAMINOPHEN
     Indication: PRODUCT USED FOR UNKNOWN INDICATION
     Dosage: 325 MG MILLIGRAM(S), AS NEEDED

REACTIONS (6)
  - Eye infection staphylococcal [Recovered/Resolved]
  - Conjunctival haemorrhage [Recovered/Resolved]
  - Blindness unilateral [Recovered/Resolved]
  - Endophthalmitis [Recovered/Resolved]
  - Blindness transient [Recovered/Resolved]
  - General physical health deterioration [Recovered/Resolved]

NARRATIVE: CASE EVENT DATE: 20161104
